FAERS Safety Report 7092260-6 (Version None)
Quarter: 2010Q4

REPORT INFORMATION
  Report Type: 
  Country: None (occurrence: None)
  Receive Date: 20101109
  Receipt Date: 20101102
  Transmission Date: 20110411
  Serious: Yes (Death)
  Sender: FDA-Public Use
  Company Number: JP-ABBOTT-10P-087-0681290-00

PATIENT
  Age: 78 Year
  Sex: Male
  Weight: 49 kg

DRUGS (6)
  1. LEUPROLIDE ACETATE [Suspect]
     Indication: PROSTATE CANCER STAGE II
     Route: 058
     Dates: start: 20080724, end: 20090108
  2. BICALUTAMIDE [Concomitant]
     Indication: PROSTATE CANCER STAGE II
     Route: 048
     Dates: start: 20070131, end: 20090310
  3. OMEPRAL [Concomitant]
     Indication: GASTRIC ULCER
     Route: 048
     Dates: end: 20090310
  4. ADALAT [Concomitant]
     Indication: HYPERTENSION
     Route: 048
     Dates: end: 20090310
  5. ITOROL [Concomitant]
     Indication: ANGINA PECTORIS
     Route: 048
     Dates: end: 20090310
  6. SIGMART [Concomitant]
     Indication: ANGINA PECTORIS
     Route: 048
     Dates: end: 20090310

REACTIONS (1)
  - CARDIAC DISORDER [None]
